FAERS Safety Report 6833923-4 (Version None)
Quarter: 2010Q3

REPORT INFORMATION
  Report Type: 
  Country: None (occurrence: None)
  Receive Date: 20100712
  Receipt Date: 20070405
  Transmission Date: 20110219
  Serious: Yes (Other)
  Sender: FDA-Public Use
  Company Number: US-PFIZER INC-2007028066

PATIENT
  Sex: Female
  Weight: 93.4 kg

DRUGS (1)
  1. CHANTIX [Suspect]
     Indication: EX-TOBACCO USER
     Dates: start: 20070101, end: 20070101

REACTIONS (3)
  - AGGRESSION [None]
  - ANGER [None]
  - SUICIDAL IDEATION [None]
